FAERS Safety Report 9951455 (Version 2)
Quarter: 2015Q1

REPORT INFORMATION
  Report Type: Report from Study
  Country: US (occurrence: US)
  Receive Date: 20140304
  Receipt Date: 20150213
  Transmission Date: 20150721
  Serious: No
  Sender: FDA-Public Use
  Company Number: US-ABBVIE-13P-163-1072322-00

PATIENT
  Age: 27 Year
  Sex: Male

DRUGS (1)
  1. HUMIRA [Suspect]
     Active Substance: ADALIMUMAB
     Indication: STILL^S DISEASE ADULT ONSET
     Route: 058
     Dates: start: 201302

REACTIONS (5)
  - Injection site pruritus [Recovered/Resolved]
  - Injection site pruritus [Unknown]
  - Injection site mass [Recovered/Resolved]
  - Injection site pain [Unknown]
  - Injection site papule [Unknown]

NARRATIVE: CASE EVENT DATE: 20130317
